FAERS Safety Report 12297115 (Version 1)
Quarter: 2016Q2

REPORT INFORMATION
  Report Type: Spontaneous
  Country: IT (occurrence: IT)
  Receive Date: 20160422
  Receipt Date: 20160422
  Transmission Date: 20160815
  Serious: Yes (Death)
  Sender: FDA-Public Use
  Company Number: IT-ROXANE LABORATORIES, INC.-2016-RO-00721RO

PATIENT
  Age: 34 Year
  Sex: Male

DRUGS (5)
  1. BENZOYLECGONINE [Concomitant]
     Active Substance: BENZOYLECGONINE
     Route: 065
  2. COCAINE [Concomitant]
     Active Substance: COCAINE
     Route: 065
  3. DOLOPHINE [Suspect]
     Active Substance: METHADONE HYDROCHLORIDE
     Indication: DRUG WITHDRAWAL MAINTENANCE THERAPY
     Route: 065
  4. ETHANOL [Concomitant]
     Active Substance: ALCOHOL
     Route: 065
  5. CITALOPRAM [Concomitant]
     Active Substance: CITALOPRAM HYDROBROMIDE
     Route: 065

REACTIONS (1)
  - Toxicity to various agents [Fatal]
